FAERS Safety Report 6272159-5 (Version None)
Quarter: 2009Q3

REPORT INFORMATION
  Report Type: 
  Country: None (occurrence: None)
  Receive Date: 20090717
  Receipt Date: 20090713
  Transmission Date: 20100115
  Serious: Yes (Hospitalization, Other)
  Sender: FDA-Public Use
  Company Number: US-TEVA-201894USA

PATIENT
  Sex: Female
  Weight: 52.21 kg

DRUGS (1)
  1. PLAN B [Suspect]
     Indication: POST COITAL CONTRACEPTION
     Route: 048
     Dates: start: 20090613, end: 20090614

REACTIONS (3)
  - APPENDICECTOMY [None]
  - DRUG INEFFECTIVE [None]
  - PREGNANCY AFTER POST COITAL CONTRACEPTION [None]
